FAERS Safety Report 8865004 (Version 1)
Quarter: 2012Q4

REPORT INFORMATION
  Report Type: 
  Country: US (occurrence: US)
  Receive Date: 20121024
  Receipt Date: 20121024
  Transmission Date: 20130627
  Serious: No
  Sender: FDA-Public Use
  Company Number: US-AMGEN-USASP2012000656

PATIENT
  Age: 64 Year
  Sex: Male

DRUGS (6)
  1. ENBREL [Suspect]
     Indication: PRODUCT USED FOR UNKNOWN INDICATION
     Dosage: 50 mg, qwk
     Route: 058
  2. TRAZODONE [Concomitant]
     Dosage: 300 mg, UNK
  3. ATENOLOL [Concomitant]
     Dosage: 25 mg, UNK
  4. HYDROCHLOROTHIAZIDE [Concomitant]
     Dosage: 25 mg, UNK
  5. LISINOPRIL [Concomitant]
     Dosage: 10 mg, UNK
  6. CENTRUM [Concomitant]
     Dosage: 300 mg, UNK

REACTIONS (1)
  - Contusion [Unknown]
